FAERS Safety Report 5956904-1 (Version None)
Quarter: 2008Q4

REPORT INFORMATION
  Report Type: 
  Country: None (occurrence: None)
  Receive Date: 20081118
  Receipt Date: 20081110
  Transmission Date: 20090506
  Serious: Yes (Hospitalization)
  Sender: FDA-Public Use
  Company Number: US-JNJFOC-20081102939

PATIENT
  Sex: Female

DRUGS (14)
  1. RISPERDAL [Suspect]
     Indication: BIPOLAR DISORDER
  2. XANAX [Concomitant]
  3. LEXAPRO [Concomitant]
  4. DUONEB [Concomitant]
  5. KLONOPIN [Concomitant]
  6. ADVAIR DISKUS 100/50 [Concomitant]
  7. HYDROCHLOROTHIAZIDE [Concomitant]
  8. PREVACID [Concomitant]
  9. REGLAN [Concomitant]
  10. FLAGYL [Concomitant]
  11. AVELOX [Concomitant]
  12. DIOVAN [Concomitant]
  13. COUMADIN [Concomitant]
  14. MORPHINE SULFATE [Concomitant]

REACTIONS (5)
  - ABNORMAL DREAMS [None]
  - AGITATION [None]
  - HALLUCINATION, AUDITORY [None]
  - INSOMNIA [None]
  - SUICIDAL IDEATION [None]
